FAERS Safety Report 7551626-8 (Version None)
Quarter: 2011Q2

REPORT INFORMATION
  Report Type: 
  Country: None (occurrence: None)
  Receive Date: 20110616
  Receipt Date: 20110613
  Transmission Date: 20111010
  Serious: Yes (Other)
  Sender: FDA-Public Use
  Company Number: CN-PFIZER INC-2011117608

PATIENT
  Age: 30 Year
  Sex: Male

DRUGS (2)
  1. MEROPENEM [Concomitant]
     Indication: INFECTION
  2. ZYVOX [Suspect]
     Indication: STAPHYLOCOCCAL INFECTION
     Dosage: 0.6 G, Q12H
     Route: 041

REACTIONS (3)
  - STAPHYLOCOCCAL INFECTION [None]
  - DISEASE RECURRENCE [None]
  - BODY TEMPERATURE FLUCTUATION [None]
